FAERS Safety Report 21922821 (Version 1)
Quarter: 2023Q1

REPORT INFORMATION
  Report Type: Spontaneous
  Country: US (occurrence: US)
  Receive Date: 20230128
  Receipt Date: 20230128
  Transmission Date: 20230418
  Serious: No
  Sender: FDA-Public Use
  Company Number: US-drreddys-SPO/USA/22/0158718

PATIENT
  Age: 66 Year
  Sex: Male

DRUGS (4)
  1. LENALIDOMIDE [Suspect]
     Active Substance: LENALIDOMIDE
     Indication: Plasma cell myeloma
     Dosage: FOR 21 DAYS OF A 28 DAY CYCLE
     Route: 048
     Dates: start: 20221025
  2. LEXAPRO TAB [Concomitant]
     Indication: Product used for unknown indication
  3. TESTOSTERONE SOL [Concomitant]
     Indication: Product used for unknown indication
  4. ESZOPICLONE TAB [Concomitant]
     Indication: Product used for unknown indication

REACTIONS (1)
  - Product dose omission issue [Unknown]
